FAERS Safety Report 5679416-1 (Version None)
Quarter: 2008Q1

REPORT INFORMATION
  Report Type: 
  Country: None (occurrence: None)
  Receive Date: 20080321
  Receipt Date: 20080312
  Transmission Date: 20080703
  Serious: Yes (Death)
  Sender: FDA-Public Use
  Company Number: 2008-00584

PATIENT
  Age: 1 Year

DRUGS (1)
  1. VELCADE [Suspect]
     Indication: DRUG USE FOR UNKNOWN INDICATION
     Dosage: 2.10 MG
     Dates: start: 20080201, end: 20080208

REACTIONS (2)
  - BRONCHOPNEUMONIA [None]
  - SEPTIC SHOCK [None]
